FAERS Safety Report 10470301 (Version 1)
Quarter: 2014Q3

REPORT INFORMATION
  Report Type: Spontaneous
  Country: US (occurrence: None)
  Receive Date: 20140922
  Receipt Date: 20140922
  Transmission Date: 20150326
  Serious: Yes (Hospitalization)
  Sender: FDA-Public Use
  Company Number: None

PATIENT
  Age: 56 Year
  Sex: Male
  Weight: 81.19 kg

DRUGS (10)
  1. MULTIPLE VITAMINS-MINERALS (ANTIOXIDANT PO) [Concomitant]
  2. DEXAMETHASONE. [Concomitant]
     Active Substance: DEXAMETHASONE
  3. ONDANSETRON [Concomitant]
     Active Substance: ONDANSETRON
  4. DOCETAXEL [Suspect]
     Active Substance: DOCETAXEL
     Indication: CHEMOTHERAPY
  5. SORAFENIB [Suspect]
     Active Substance: SORAFENIB
  6. LACTULOSE SOLUTION USP, 10 G/15 ML [Concomitant]
     Active Substance: LACTULOSE
  7. OXYCODONE [Concomitant]
     Active Substance: OXYCODONE
  8. CISPLATIN. [Suspect]
     Active Substance: CISPLATIN
     Indication: CHEMOTHERAPY
     Dosage: 152 MG CIS+ IV AND ORAL
     Dates: start: 20140401, end: 20140619
  9. ALPRAZOLAM. [Concomitant]
     Active Substance: ALPRAZOLAM
  10. PROCHLORPERAZINE. [Suspect]
     Active Substance: PROCHLORPERAZINE

REACTIONS (10)
  - Asthenia [None]
  - Vomiting [None]
  - Nausea [None]
  - Dyspepsia [None]
  - Decreased appetite [None]
  - Fatigue [None]
  - Lipase increased [None]
  - Leukopenia [None]
  - Thrombocytopenia [None]
  - Diarrhoea [None]

NARRATIVE: CASE EVENT DATE: 20140806
